FAERS Safety Report 16655062 (Version 1)
Quarter: 2019Q3

REPORT INFORMATION
  Report Type: Other
  Country: IT (occurrence: IT)
  Receive Date: 20190801
  Receipt Date: 20190801
  Transmission Date: 20191004
  Serious: Yes (Other)
  Sender: FDA-Public Use
  Company Number: IT-CELLTRION INC.-2019IT023276

PATIENT

DRUGS (3)
  1. RITUXIMAB (UNKNOWN) [Suspect]
     Active Substance: RITUXIMAB
     Indication: NEUROMYELITIS OPTICA SPECTRUM DISORDER
     Dosage: UNK
     Route: 065
     Dates: start: 20161001
  2. PARACETAMOL [Concomitant]
     Active Substance: ACETAMINOPHEN
  3. CORTISONE [Concomitant]
     Active Substance: CORTISONE
     Dosage: 6 DAY COURSE
     Route: 042

REACTIONS (6)
  - Neuromyelitis optica spectrum disorder [Unknown]
  - Off label use [Unknown]
  - Blood count abnormal [Unknown]
  - Intentional product use issue [Unknown]
  - Nasopharyngitis [Unknown]
  - Onychomycosis [Unknown]
